FAERS Safety Report 19879321 (Version 1)
Quarter: 2021Q3

REPORT INFORMATION
  Report Type: Spontaneous
  Country: US (occurrence: US)
  Receive Date: 20210923
  Receipt Date: 20210923
  Transmission Date: 20211014
  Serious: No
  Sender: FDA-Public Use
  Company Number: US-ELI_LILLY_AND_COMPANY-US202109003987

PATIENT
  Age: 54 Year
  Sex: Female

DRUGS (1)
  1. CYMBALTA [Suspect]
     Active Substance: DULOXETINE HYDROCHLORIDE
     Indication: PRODUCT USED FOR UNKNOWN INDICATION
     Dosage: 60 MG, EACH MORNING
     Route: 065

REACTIONS (5)
  - Drug withdrawal syndrome [Unknown]
  - Product dose omission issue [Unknown]
  - Agitation [Unknown]
  - Disturbance in attention [Unknown]
  - Disorientation [Unknown]

NARRATIVE: CASE EVENT DATE: 20210909
